FAERS Safety Report 4433951-2 (Version None)
Quarter: 2004Q3

REPORT INFORMATION
  Report Type: 
  Country: None (occurrence: None)
  Receive Date: 20040825
  Receipt Date: 20040825
  Transmission Date: 20050211
  Serious: Yes (Hospitalization)
  Sender: FDA-Public Use
  Company Number: None

PATIENT
  Age: 66 Year
  Sex: Male
  Weight: 75.7961 kg

DRUGS (1)
  1. MEGACE [Suspect]
     Dosage: PO, 20 ML/ DAILY
     Route: 048
     Dates: start: 20040625

REACTIONS (3)
  - CHRONIC OBSTRUCTIVE AIRWAYS DISEASE EXACERBATED [None]
  - DYSPNOEA [None]
  - PLEURAL EFFUSION [None]
